FAERS Safety Report 5386476-4 (Version None)
Quarter: 2007Q3

REPORT INFORMATION
  Report Type: 
  Country: None (occurrence: None)
  Receive Date: 20070713
  Receipt Date: 20070702
  Transmission Date: 20080115
  Serious: Yes (Disabling)
  Sender: FDA-Public Use
  Company Number: DE-AVENTIS-200710848DE

PATIENT
  Age: 56 Year
  Sex: Female
  Weight: 105 kg

DRUGS (6)
  1. APIDRA [Suspect]
     Indication: TYPE 1 DIABETES MELLITUS
     Dosage: DOSE: UP TO 90
     Route: 058
     Dates: start: 20060201, end: 20061201
  2. NOVO RAPID [Concomitant]
     Indication: TYPE 1 DIABETES MELLITUS
     Dosage: DOSE: NOT REPORTED
     Route: 058
  3. ACTRAPID [Concomitant]
     Indication: TYPE 1 DIABETES MELLITUS
     Dosage: DOSE: NOT REPORTED
     Route: 058
  4. CATAPRESAN                         /00171101/ [Concomitant]
     Indication: HYPERTENSION
     Route: 048
     Dates: start: 20050101
  5. NITROLINGUAL [Concomitant]
     Indication: HYPERTENSION
     Dosage: DOSE: NOT REPORTED
     Route: 048
  6. NAPROXEN [Concomitant]
     Indication: SPINAL DISORDER
     Dosage: DOSE: NOT REPORTED
     Route: 048
     Dates: start: 20060101

REACTIONS (2)
  - ASTHENIA [None]
  - DEPRESSED MOOD [None]
